FAERS Safety Report 10712045 (Version 1)
Quarter: 2015Q1

REPORT INFORMATION
  Report Type: Spontaneous
  Country: US (occurrence: US)
  Receive Date: 20150114
  Receipt Date: 20150114
  Transmission Date: 20150721
  Serious: No
  Sender: FDA-Public Use
  Company Number: US-ALLERGAN-1402044US

PATIENT
  Age: 14 Year
  Sex: Female

DRUGS (3)
  1. ACZONE [Suspect]
     Active Substance: DAPSONE
     Indication: ACNE
     Dosage: UNK
     Route: 061
  2. TAZORAC [Concomitant]
     Active Substance: TAZAROTENE
     Indication: ACNE
     Dosage: UNK UNK, QPM
     Route: 061
  3. ACANYA [Concomitant]
     Active Substance: BENZOYL PEROXIDE\CLINDAMYCIN PHOSPHATE
     Indication: ACNE
     Dosage: UNK UNK, QAM
     Route: 061

REACTIONS (2)
  - Inappropriate schedule of drug administration [Unknown]
  - Skin discolouration [Recovered/Resolved]
